FAERS Safety Report 6803216-X (Version None)
Quarter: 2010Q2

REPORT INFORMATION
  Report Type: 
  Country: None (occurrence: None)
  Receive Date: 20100628
  Receipt Date: 20100616
  Transmission Date: 20101027
  Serious: Yes (Other)
  Sender: FDA-Public Use
  Company Number: B0658896A

PATIENT
  Sex: Female
  Weight: 60 kg

DRUGS (4)
  1. TYKERB [Suspect]
     Indication: BREAST CANCER
     Dosage: 1250MG PER DAY
     Route: 048
     Dates: start: 20090819
  2. XELODA [Suspect]
     Indication: BREAST CANCER
     Dosage: 2400MG PER DAY
     Route: 048
     Dates: start: 20090819, end: 20100223
  3. EXEMESTANE [Concomitant]
     Indication: BREAST CANCER
     Dosage: 25MG PER DAY
     Dates: start: 20100127
  4. FLOMOX [Concomitant]
     Indication: CYSTITIS
     Route: 048
     Dates: start: 20090902

REACTIONS (2)
  - PAIN [None]
  - SKIN EROSION [None]
